FAERS Safety Report 10181721 (Version 1)
Quarter: 2014Q2

REPORT INFORMATION
  Report Type: Spontaneous
  Country: US (occurrence: US)
  Receive Date: 20140519
  Receipt Date: 20140519
  Transmission Date: 20141212
  Serious: No
  Sender: FDA-Public Use
  Company Number: US-BANPHARM-20131463

PATIENT
  Age: 58 Year
  Sex: Male
  Weight: 74.84 kg

DRUGS (3)
  1. IBUPROFEN CAPSULES 200 MG [Suspect]
     Indication: PAIN
     Dosage: 1 DF, BID,
     Route: 048
     Dates: start: 20130425, end: 20130507
  2. INSULIN [Concomitant]
  3. METFORMIN 500 MG [Concomitant]
     Dosage: 1 DF, QD,

REACTIONS (2)
  - Rash [Recovered/Resolved]
  - Expired product administered [Unknown]
